FAERS Safety Report 10221629 (Version 1)
Quarter: 2014Q2

REPORT INFORMATION
  Report Type: Report from Study
  Country: CA (occurrence: CA)
  Receive Date: 20140606
  Receipt Date: 20140606
  Transmission Date: 20141212
  Serious: Yes (Hospitalization, Other)
  Sender: FDA-Public Use
  Company Number: CA-ABBVIE-14P-028-1241860-00

PATIENT
  Sex: Male

DRUGS (12)
  1. LUPRON DEPOT [Suspect]
     Indication: PROSTATE CANCER
     Dosage: INTERMITTENT, NO. OF COURSES: 3
     Route: 030
     Dates: start: 20130422
  2. APO-RANITIDINE [Concomitant]
     Indication: PRODUCT USED FOR UNKNOWN INDICATION
     Route: 048
  3. LIPITOR [Concomitant]
     Indication: PRODUCT USED FOR UNKNOWN INDICATION
     Route: 048
  4. RATIO-TAMSULOSIN [Concomitant]
     Indication: PRODUCT USED FOR UNKNOWN INDICATION
  5. APO-METOPROLOL (TYPE L) [Concomitant]
     Indication: PRODUCT USED FOR UNKNOWN INDICATION
     Route: 048
  6. APO-LISINOPRIL [Concomitant]
     Indication: PRODUCT USED FOR UNKNOWN INDICATION
  7. ARICEPT [Concomitant]
     Indication: PRODUCT USED FOR UNKNOWN INDICATION
     Dosage: ONCE DAILY EVERY NIGHT AT BEDTIME
  8. APO-HYDRO [Concomitant]
     Indication: PRODUCT USED FOR UNKNOWN INDICATION
  9. PRADAX [Concomitant]
     Indication: CEREBROVASCULAR ACCIDENT PROPHYLAXIS
     Dates: end: 20140429
  10. PRADAX [Concomitant]
     Dates: start: 20140501
  11. DETROL [Concomitant]
     Indication: PRODUCT USED FOR UNKNOWN INDICATION
  12. DABIGATRAN [Concomitant]
     Indication: ATRIAL FIBRILLATION

REACTIONS (6)
  - Chest pain [Unknown]
  - Dyspnoea [Unknown]
  - Fatigue [Unknown]
  - Coronary artery dilatation [Unknown]
  - Cardiovascular disorder [Unknown]
  - Myocardial ischaemia [Unknown]
